FAERS Safety Report 8795584 (Version 3)
Quarter: 2012Q4

REPORT INFORMATION
  Report Type: Report from Study
  Country: US (occurrence: US)
  Receive Date: 20120919
  Receipt Date: 20121115
  Transmission Date: 20130627
  Serious: Yes (Death, Hospitalization)
  Sender: FDA-Public Use
  Company Number: US-PURDUE-USA-2012-0093084

PATIENT
  Age: 56 None
  Sex: Female

DRUGS (1)
  1. OXYCONTIN (NDA 22-272) [Suspect]
     Indication: PAIN
     Dosage: 240 mg, tid
     Route: 048

REACTIONS (6)
  - Pancreas transplant [Unknown]
  - Brain injury [Unknown]
  - Complications of transplanted pancreas [Fatal]
  - Fall [Unknown]
  - Head injury [Unknown]
  - Abdominal pain upper [Unknown]
